FAERS Safety Report 13109106 (Version 2)
Quarter: 2017Q1

REPORT INFORMATION
  Report Type: Spontaneous
  Country: US (occurrence: US)
  Receive Date: 20170112
  Receipt Date: 20170120
  Transmission Date: 20170428
  Serious: Yes (Other)
  Sender: FDA-Public Use
  Company Number: US-CELGENEUS-USA-2017011949

PATIENT
  Age: 75 Year
  Sex: Male

DRUGS (9)
  1. GABAPENTIN. [Concomitant]
     Active Substance: GABAPENTIN
     Indication: DIABETIC NEUROPATHY
     Dosage: 600 MILLIGRAM
     Route: 065
     Dates: start: 2009
  2. CARVEDILOL. [Concomitant]
     Active Substance: CARVEDILOL
     Indication: HEART RATE INCREASED
     Route: 065
     Dates: start: 201610
  3. METFORMIN [Concomitant]
     Active Substance: METFORMIN HYDROCHLORIDE
     Indication: DIABETES MELLITUS
     Dosage: 500 MILLIGRAM
     Route: 065
     Dates: start: 2006
  4. SIMVASTATIN. [Concomitant]
     Active Substance: SIMVASTATIN
     Indication: HYPERTENSION
     Dosage: 140 MILLIGRAM
     Route: 065
     Dates: start: 2009
  5. ASPIRIN. [Concomitant]
     Active Substance: ASPIRIN
     Indication: HYPERTENSION
     Dosage: 81 MILLIGRAM
     Route: 065
     Dates: start: 2009
  6. LISINOPRIL. [Concomitant]
     Active Substance: LISINOPRIL
     Indication: HYPERTENSION
     Dosage: 120 MILLIGRAM
     Route: 065
     Dates: start: 2009
  7. OTEZLA [Suspect]
     Active Substance: APREMILAST
     Indication: PSORIASIS
     Dosage: 60 MILLIGRAM
     Route: 048
     Dates: start: 20161221
  8. FISH OIL [Concomitant]
     Active Substance: FISH OIL
     Indication: SUPPLEMENTATION THERAPY
     Route: 065
     Dates: start: 2009
  9. FLUOCINONIDE. [Concomitant]
     Active Substance: FLUOCINONIDE
     Indication: PSORIASIS
     Route: 065
     Dates: start: 201609, end: 20161219

REACTIONS (5)
  - Urine odour abnormal [Recovered/Resolved]
  - Asthenia [Recovered/Resolved]
  - Diarrhoea [Recovered/Resolved]
  - Nasopharyngitis [Recovered/Resolved]
  - Sluggishness [Recovered/Resolved]

NARRATIVE: CASE EVENT DATE: 20161226
